FAERS Safety Report 5329741-9 (Version None)
Quarter: 2007Q2

REPORT INFORMATION
  Report Type: 
  Country: None (occurrence: None)
  Receive Date: 20070515
  Receipt Date: 20070504
  Transmission Date: 20071010
  Serious: Yes (Hospitalization)
  Sender: FDA-Public Use
  Company Number: GXKR2007GB04084

PATIENT
  Age: 74 Year
  Sex: Male
  Weight: 40 kg

DRUGS (5)
  1. SIMVASTATIN [Suspect]
     Dosage: 40 MG, ORAL
     Route: 048
     Dates: start: 20070413, end: 20070414
  2. CLOPIDOGREL [Suspect]
     Dosage: 75 MG, ORAL
     Route: 048
     Dates: start: 20070414, end: 20070414
  3. ASPIRIN [Concomitant]
  4. ATENOLOL [Concomitant]
  5. CO-AMOXICLAV (AMOXICILLIN, CLAVULANATE POTASSIUM) [Concomitant]

REACTIONS (2)
  - JAUNDICE [None]
  - LIVER FUNCTION TEST ABNORMAL [None]
